FAERS Safety Report 9524549 (Version 1)
Quarter: 2013Q3

REPORT INFORMATION
  Report Type: Spontaneous
  Country: US (occurrence: US)
  Receive Date: 20130916
  Receipt Date: 20130916
  Transmission Date: 20140515
  Serious: No
  Sender: FDA-Public Use
  Company Number: US-PFIZER INC-2013265596

PATIENT
  Age: 54 Year
  Sex: Female
  Weight: 66.67 kg

DRUGS (5)
  1. LYRICA [Suspect]
     Indication: PAIN IN EXTREMITY
     Dosage: 75MG IN MORNING, 75MG AT NOON AND 150MG (2 X75MG CAPSULES) AT NIGHT, 3X/DAY
     Route: 048
     Dates: start: 20130618
  2. LYRICA [Interacting]
     Indication: MUSCULOSKELETAL PAIN
  3. LYRICA [Interacting]
     Indication: NECK PAIN
  4. CLARITIN [Interacting]
     Indication: SEASONAL ALLERGY
     Dosage: UNK
  5. ASPIRIN [Concomitant]
     Dosage: 81 MG, 1X/DAY

REACTIONS (8)
  - Drug interaction [Unknown]
  - Weight increased [Unknown]
  - Dizziness [Unknown]
  - Somnolence [Unknown]
  - Therapeutic response unexpected [Unknown]
  - Drug ineffective [Unknown]
  - Drug dose omission [Unknown]
  - Balance disorder [Unknown]
